FAERS Safety Report 8570260-4 (Version None)
Quarter: 2012Q3

REPORT INFORMATION
  Report Type: 
  Country: None (occurrence: None)
  Receive Date: 20120803
  Receipt Date: 20120724
  Transmission Date: 20120928
  Serious: Yes (Death)
  Sender: FDA-Public Use
  Company Number: JP-BAXTER-2012BAX011761

PATIENT
  Sex: Male

DRUGS (2)
  1. DIANEAL PD-2 W/ DEXTROSE 4.25% [Suspect]
     Route: 033
     Dates: end: 20120628
  2. DIANEAL PD-2 W/ DEXTROSE 4.25% [Suspect]
     Indication: RENAL FAILURE CHRONIC
     Route: 033
     Dates: end: 20120628

REACTIONS (1)
  - CARDIAC DISORDER [None]
